FAERS Safety Report 7387982-3 (Version None)
Quarter: 2011Q2

REPORT INFORMATION
  Report Type: 
  Country: None (occurrence: None)
  Receive Date: 20110401
  Receipt Date: 20090501
  Transmission Date: 20111010
  Serious: Yes (Hospitalization)
  Sender: FDA-Public Use
  Company Number: 2008BI030948

PATIENT
  Age: 48 Year
  Sex: Female

DRUGS (1)
  1. TYSABRI [Suspect]
     Indication: MULTIPLE SCLEROSIS
     Route: 042
     Dates: start: 20070326

REACTIONS (9)
  - PNEUMONIA ASPIRATION [None]
  - GAIT DISTURBANCE [None]
  - FATIGUE [None]
  - ASPIRATION [None]
  - VULVOVAGINAL PRURITUS [None]
  - HYPOTHYROIDISM [None]
  - WHITE BLOOD CELL COUNT INCREASED [None]
  - MENOPAUSE [None]
  - DERMATITIS BULLOUS [None]
